FAERS Safety Report 11325298 (Version 2)
Quarter: 2015Q3

REPORT INFORMATION
  Report Type: Spontaneous
  Country: US (occurrence: US)
  Receive Date: 20150730
  Receipt Date: 20150922
  Transmission Date: 20151125
  Serious: No
  Sender: FDA-Public Use
  Company Number: US-PFIZER INC-2015250807

PATIENT
  Age: 70 Year
  Sex: Female
  Weight: 71 kg

DRUGS (2)
  1. VANCOMYCIN [Suspect]
     Active Substance: VANCOMYCIN
     Indication: CELLULITIS
     Dosage: UNK
     Route: 042
     Dates: end: 20150419
  2. CLINDAMYCIN HCL [Suspect]
     Active Substance: CLINDAMYCIN HYDROCHLORIDE
     Indication: CELLULITIS
     Dosage: UNK

REACTIONS (1)
  - Drug effect incomplete [Unknown]
